FAERS Safety Report 5272200-2 (Version None)
Quarter: 2007Q1

REPORT INFORMATION
  Report Type: 
  Country: None (occurrence: None)
  Receive Date: 20070322
  Receipt Date: 20070309
  Transmission Date: 20070707
  Serious: Yes (Hospitalization)
  Sender: FDA-Public Use
  Company Number: CS-NOVOPROD-260223

PATIENT
  Age: 2 Year
  Sex: Female
  Weight: 10 kg

DRUGS (2)
  1. LEVEMIR [Suspect]
     Indication: DIABETES MELLITUS INSULIN-DEPENDENT
     Dosage: 10 IU, QD
     Route: 058
     Dates: start: 20070103, end: 20070110
  2. ACTRAPID [Concomitant]
     Indication: DIABETES MELLITUS INSULIN-DEPENDENT
     Dosage: .5 IU, UNK
     Dates: start: 20061230, end: 20070104

REACTIONS (3)
  - BLOOD GLUCOSE FLUCTUATION [None]
  - DEVICE LEAKAGE [None]
  - PNEUMONIA [None]
